FAERS Safety Report 7964235-3 (Version None)
Quarter: 2011Q4

REPORT INFORMATION
  Report Type: 
  Country: None (occurrence: None)
  Receive Date: 20111121
  Receipt Date: 20110908
  Transmission Date: 20120403
  Serious: No
  Sender: FDA-Public Use
  Company Number: 1000023659

PATIENT
  Age: 64 Year
  Sex: Female

DRUGS (11)
  1. AMBIEN [Concomitant]
  2. VIIBRYD [Suspect]
     Indication: DEPRESSION
     Dosage: 40 MG (40 MG,1 IN 1 D),ORAL
     Route: 048
     Dates: start: 20110819, end: 20110821
  3. LOVAZA (OMEGA-3 MARINE TRIGLYCERIDES) (OMEGA-3 MARINE TRIGLYCERIDES) [Concomitant]
  4. PREMPRO (CONJUGATED ESTROGENS, MEDROXYPROGESTERONE) (CONJUGATED ESTROG [Concomitant]
  5. VIIBRYD [Suspect]
     Indication: DEPRESSION
     Dosage: 10 MG (10 MG,1 IN 1 D),ORAL ; 20 MG (20 MG,1 IN 1 D),ORAL
     Route: 048
     Dates: start: 20110812, end: 20110818
  6. VIIBRYD [Suspect]
     Indication: DEPRESSION
     Dosage: 10 MG (10 MG,1 IN 1 D),ORAL ; 20 MG (20 MG,1 IN 1 D),ORAL
     Route: 048
     Dates: start: 20110805, end: 20110811
  7. BENADRYL (DIPHENHYDRAMINE) (DIPHENHYDRAMINE) (DIPHENHYDRAMINE) [Concomitant]
  8. ASACOL (MESALAZINE) (MESALAZINE) [Concomitant]
  9. MULTIVITAMINS (MULTIVITAMINS) (MULTIVITAMINS) [Concomitant]
  10. VITAMIN D (VITAMIN D) (VITAMIN D) [Concomitant]
  11. VIIBRYD [Suspect]
     Indication: DEPRESSION
     Dosage: 10 MG ALTERNATING WITH 20 MG QOD, ORAL
     Route: 048
     Dates: start: 20110822, end: 20110829

REACTIONS (6)
  - FAECES DISCOLOURED [None]
  - FEELING ABNORMAL [None]
  - LETHARGY [None]
  - RESTLESS LEGS SYNDROME [None]
  - INFLAMMATION [None]
  - DRUG INEFFECTIVE [None]
